FAERS Safety Report 6344667-X (Version None)
Quarter: 2009Q3

REPORT INFORMATION
  Report Type: 
  Country: None (occurrence: None)
  Receive Date: 20090821
  Receipt Date: 20090605
  Transmission Date: 20100115
  Serious: No
  Sender: FDA-Public Use
  Company Number: 8047530

PATIENT
  Age: 45 Year

DRUGS (1)
  1. CIMZIA [Suspect]
     Dosage: 400 MG SC
     Route: 058
     Dates: start: 20090216

REACTIONS (1)
  - INJECTION SITE PAIN [None]
